FAERS Safety Report 6743288-4 (Version None)
Quarter: 2010Q2

REPORT INFORMATION
  Report Type: 
  Country: None (occurrence: None)
  Receive Date: 20100527
  Receipt Date: 20100519
  Transmission Date: 20101027
  Serious: Yes (Other)
  Sender: FDA-Public Use
  Company Number: FR-ASTRAZENECA-2010SE23361

PATIENT
  Age: 77 Year
  Sex: Female

DRUGS (6)
  1. CANDESARTAN CILEXETIL/HYDROCHLOROTHIAZIDE (ATACAND HCT) [Suspect]
     Indication: HYPERTENSION
     Route: 048
     Dates: start: 20080501
  2. MYOLASTAN [Suspect]
     Indication: BACK PAIN
     Route: 048
     Dates: start: 20090825, end: 20090826
  3. TAHOR [Concomitant]
     Indication: HYPERCHOLESTEROLAEMIA
     Route: 065
  4. BISOPROLOL FUMARATE [Concomitant]
     Indication: HYPERTENSION
     Route: 065
  5. PLAVIX [Concomitant]
     Indication: PROPHYLAXIS
     Route: 065
     Dates: start: 20080501
  6. MODOPAR [Concomitant]
     Indication: PARKINSON'S DISEASE
     Route: 065
     Dates: start: 20081124

REACTIONS (3)
  - MOUTH HAEMORRHAGE [None]
  - ORAL MUCOSA EROSION [None]
  - ORAL MUCOSAL EXFOLIATION [None]
